FAERS Safety Report 9564528 (Version 1)
Quarter: 2013Q3

REPORT INFORMATION
  Report Type: Spontaneous
  Country: US (occurrence: US)
  Receive Date: 20130930
  Receipt Date: 20130930
  Transmission Date: 20140515
  Serious: Yes (Hospitalization)
  Sender: FDA-Public Use
  Company Number: US-GLAXOSMITHKLINE-A1017037A

PATIENT
  Age: 5 Year
  Sex: Female

DRUGS (2)
  1. LAMICTAL [Suspect]
     Indication: EPILEPSY
     Dosage: 45MG TWICE PER DAY
     Route: 048
     Dates: start: 20130121, end: 20130210
  2. NO CONCURRENT MEDICATION [Concomitant]

REACTIONS (2)
  - Stevens-Johnson syndrome [Recovered/Resolved]
  - Rash generalised [Recovered/Resolved]
